FAERS Safety Report 8415535-4 (Version None)
Quarter: 2012Q2

REPORT INFORMATION
  Report Type: 
  Country: None (occurrence: None)
  Receive Date: 20120606
  Receipt Date: 20120525
  Transmission Date: 20120825
  Serious: Yes (Hospitalization)
  Sender: FDA-Public Use
  Company Number: FR-VERTEX PHARMACEUTICALS INC.-000000000000000782

PATIENT
  Sex: Male
  Weight: 59 kg

DRUGS (9)
  1. INCIVO [Suspect]
     Indication: PRODUCT USED FOR UNKNOWN INDICATION
     Dosage: DOSAGE FORM: TABLET
  2. OMEPRAZOLE [Concomitant]
     Indication: GASTROOESOPHAGEAL REFLUX DISEASE
     Dates: start: 20050101
  3. METFORMIN HCL [Concomitant]
     Indication: DIABETES MELLITUS
     Dates: start: 20050101
  4. CARBOSYMAG [Concomitant]
     Indication: DYSPEPSIA
     Dates: start: 20050101
  5. TRAMADOL HCL [Concomitant]
     Indication: PAIN
     Dosage: DOSAGE FORM: UNSPECIFIED
     Dates: start: 20050101
  6. ZOPICLONE [Concomitant]
     Indication: SLEEP DISORDER
     Dates: start: 20050101
  7. ACETAMINOPHEN [Concomitant]
     Indication: PAIN
     Dates: start: 20050101
  8. REPAGLINIDE [Concomitant]
     Indication: DIABETES MELLITUS
     Dates: start: 20050101
  9. CREON [Concomitant]
     Indication: PANCREATIC INSUFFICIENCY
     Dates: start: 20050101

REACTIONS (2)
  - PANCREATITIS [None]
  - DIABETES MELLITUS INADEQUATE CONTROL [None]
